FAERS Safety Report 4268893-9 (Version None)
Quarter: 2004Q1

REPORT INFORMATION
  Report Type: 
  Country: None (occurrence: None)
  Receive Date: 20040109
  Receipt Date: 20040105
  Transmission Date: 20041129
  Serious: Yes (Hospitalization)
  Sender: FDA-Public Use
  Company Number: 200410017GDS

PATIENT
  Age: 76 Year
  Sex: Male

DRUGS (9)
  1. ASPIRIN [Suspect]
     Indication: PROPHYLAXIS
     Dosage: 100 MG, QD, ORAL
     Route: 048
  2. ACEMETACIN [Suspect]
     Dosage: 80 MG, TOTAL DAILY, ORAL
     Route: 048
  3. GLYBURIDE [Suspect]
     Indication: DIABETES MELLITUS NON-INSULIN-DEPENDENT
     Dosage: 5 MG TID, ORAL
     Route: 048
  4. ROSIGLITAZONE MALEATE [Suspect]
     Indication: DIABETES MELLITUS NON-INSULIN-DEPENDENT
     Dosage: 4 MG, TOTAL DAILY, ORAL
     Route: 048
  5. DICLOFENAC SODIUM [Suspect]
     Dosage: 100 MG, QD, ORAL
     Route: 048
  6. ALFUZOSIN [Concomitant]
  7. GINKO [Concomitant]
  8. ATORVASTATINA [Concomitant]
  9. TRAMADOL [Concomitant]

REACTIONS (1)
  - HYPOGLYCAEMIA [None]
